FAERS Safety Report 7295248-5 (Version None)
Quarter: 2011Q1

REPORT INFORMATION
  Report Type: 
  Country: None (occurrence: None)
  Receive Date: 20110216
  Receipt Date: 20110204
  Transmission Date: 20110831
  Serious: Yes (Other)
  Sender: FDA-Public Use
  Company Number: TN-SANOFI-AVENTIS-2010SA075987

PATIENT
  Age: 38 Year
  Sex: Female

DRUGS (2)
  1. ISONIAZID [Suspect]
     Indication: PULMONARY TUBERCULOSIS
  2. RIFAMPICIN [Suspect]
     Indication: PULMONARY TUBERCULOSIS
     Route: 065

REACTIONS (1)
  - ASTHMA [None]
